FAERS Safety Report 7522507-0 (Version None)
Quarter: 2011Q2

REPORT INFORMATION
  Report Type: 
  Country: None (occurrence: None)
  Receive Date: 20110603
  Receipt Date: 20090712
  Transmission Date: 20111010
  Serious: Yes (Hospitalization, Other)
  Sender: FDA-Public Use
  Company Number: US-BAYER-200925948NA

PATIENT
  Age: 64 Year
  Sex: Male
  Weight: 84.354 kg

DRUGS (25)
  1. TRASYLOL [Suspect]
     Dosage: 50ML/HR INFUSION
     Route: 042
     Dates: start: 20061010, end: 20061010
  2. AMIODARONE HCL [Concomitant]
     Dosage: UNK
     Route: 048
     Dates: start: 20061001
  3. DIFLUCAN [Concomitant]
     Dosage: UNK
     Route: 048
     Dates: start: 20061001
  4. METHYLPREDNISOLONE [Concomitant]
     Dosage: 40 MG, BID
     Route: 042
     Dates: start: 20061005
  5. DIGOXIN [Concomitant]
     Dosage: 0.25 MG, UNK
     Route: 048
     Dates: start: 20061004
  6. HEPARIN [Concomitant]
     Dosage: UNK
     Route: 042
     Dates: start: 20061010, end: 20061010
  7. EPHEDRINE [Concomitant]
     Dosage: UNK
     Route: 042
     Dates: start: 20061010
  8. SUCCINYLCHOLINE CHLORIDE [Concomitant]
     Dosage: UNK
     Route: 042
     Dates: start: 20061010, end: 20061010
  9. TRASYLOL [Suspect]
     Dosage: 200 ML LOADING DOSE
     Route: 042
     Dates: start: 20061010, end: 20061010
  10. LIDOCAINE [Concomitant]
     Dosage: 100 MG, UNK
     Route: 042
  11. INSULIN [Concomitant]
     Dosage: UNK
     Route: 042
     Dates: start: 20061010
  12. TRASYLOL [Suspect]
     Indication: CORONARY ARTERY BYPASS
     Dosage: 200 ML, PRIME
     Route: 042
     Dates: start: 20061010, end: 20061010
  13. PROPOFOL [Concomitant]
     Dosage: UNK
     Route: 042
     Dates: start: 20061010, end: 20061010
  14. MAGNESIUM SULFATE [Concomitant]
     Dosage: 2 G, UNK
     Route: 042
     Dates: start: 20061010
  15. LEVAQUIN [Concomitant]
     Dosage: UNK
     Route: 048
     Dates: start: 20061001
  16. LIDOCAINE [Concomitant]
     Dosage: UNK
     Route: 042
     Dates: start: 20061010, end: 20061010
  17. PROTAMINE SULFATE [Concomitant]
     Dosage: UNK
     Route: 042
     Dates: start: 20061010
  18. ISOFLURANE [Concomitant]
     Dosage: UNK
     Route: 042
     Dates: start: 20061010
  19. ETOMIDATE [Concomitant]
     Dosage: UNK
     Route: 042
     Dates: start: 20061010
  20. CALCIUM CHLORIDE [Concomitant]
     Dosage: 1 G, UNK
     Route: 042
     Dates: start: 20061010
  21. MANNITOL [Concomitant]
     Dosage: 100
     Dates: start: 20061010
  22. ACETYLSALICYLIC ACID SRT [Concomitant]
     Dosage: UNK
     Route: 048
     Dates: start: 20061001
  23. COREG [Concomitant]
     Dosage: UNK
     Route: 048
     Dates: start: 20061001
  24. VICODIN [Concomitant]
     Dosage: UNK
     Route: 048
     Dates: start: 20061001
  25. ANCEF [Concomitant]
     Dosage: 2 G, UNK
     Route: 042
     Dates: start: 20061010

REACTIONS (10)
  - FEAR [None]
  - PAIN [None]
  - STRESS [None]
  - RENAL IMPAIRMENT [None]
  - RENAL INJURY [None]
  - RENAL FAILURE [None]
  - EMOTIONAL DISTRESS [None]
  - UNEVALUABLE EVENT [None]
  - RENAL FAILURE ACUTE [None]
  - ANXIETY [None]
